FAERS Safety Report 16109046 (Version 1)
Quarter: 2019Q1

REPORT INFORMATION
  Report Type: Spontaneous
  Country: US (occurrence: US)
  Receive Date: 20190323
  Receipt Date: 20190323
  Transmission Date: 20190418
  Serious: No
  Sender: FDA-Public Use
  Company Number: US-THERAPEUTICSMD-2019TMD00068

PATIENT
  Age: 96 Year
  Sex: Female
  Weight: 99.77 kg

DRUGS (2)
  1. ASPIRIN. [Concomitant]
     Active Substance: ASPIRIN
     Dosage: UNK, 1X/DAY AT BEDTIME
  2. IMVEXXY [Suspect]
     Active Substance: ESTRADIOL
     Indication: VULVOVAGINAL DRYNESS
     Dosage: 10 ?G, 1X/DAY BEFORE BED
     Route: 067
     Dates: start: 201901, end: 201901

REACTIONS (4)
  - Vulvovaginal pain [Unknown]
  - Off label use [Recovered/Resolved]
  - Vaginal haemorrhage [Recovered/Resolved]
  - Uterine pain [Not Recovered/Not Resolved]

NARRATIVE: CASE EVENT DATE: 201901
